FAERS Safety Report 10545291 (Version 2)
Quarter: 2014Q4

REPORT INFORMATION
  Report Type: Spontaneous
  Country: US (occurrence: US)
  Receive Date: 20141027
  Receipt Date: 20141216
  Transmission Date: 20150529
  Serious: Yes (Death, Hospitalization, Other)
  Sender: FDA-Public Use
  Company Number: US-PFIZER INC-2014290848

PATIENT
  Age: 71 Year
  Sex: Female

DRUGS (3)
  1. VFEND [Suspect]
     Active Substance: VORICONAZOLE
     Dosage: UNK
     Dates: end: 20140923
  2. VFEND [Suspect]
     Active Substance: VORICONAZOLE
     Dosage: UNK
     Dates: end: 20140623
  3. VFEND [Suspect]
     Active Substance: VORICONAZOLE
     Dosage: 50 MG, UNK

REACTIONS (4)
  - Constipation [Unknown]
  - Death [Fatal]
  - Neoplasm malignant [Not Recovered/Not Resolved]
  - Angiosarcoma [Not Recovered/Not Resolved]

NARRATIVE: CASE EVENT DATE: 20140923
